FAERS Safety Report 9857444 (Version 2)
Quarter: 2014Q1

REPORT INFORMATION
  Report Type: Spontaneous
  Country: IT (occurrence: IT)
  Receive Date: 20140131
  Receipt Date: 20140224
  Transmission Date: 20141002
  Serious: Yes (Other)
  Sender: FDA-Public Use
  Company Number: IT-ROCHE-1341387

PATIENT
  Age: 35 Year
  Sex: Female
  Weight: 75 kg

DRUGS (3)
  1. ZELBORAF [Suspect]
     Indication: MALIGNANT MELANOMA
     Route: 048
     Dates: start: 20130809
  2. ZELBORAF [Suspect]
     Dosage: 75% DOSAGE LOWERED
     Route: 048
     Dates: start: 20130906
  3. ZELBORAF [Suspect]
     Dosage: 50% DOSAGE LOWERED
     Route: 048
     Dates: start: 20131107, end: 20131119

REACTIONS (3)
  - Oedema [Recovering/Resolving]
  - Pain [Recovering/Resolving]
  - Rash [Recovering/Resolving]
